FAERS Safety Report 22989179 (Version 2)
Quarter: 2024Q3

REPORT INFORMATION
  Report Type: Spontaneous
  Country: RU (occurrence: RU)
  Receive Date: 20230927
  Receipt Date: 20240710
  Transmission Date: 20241016
  Serious: Yes (Hospitalization)
  Sender: NOVARTIS
  Company Number: RU-002147023-NVSC2023RU205269

PATIENT
  Age: 18 Year
  Sex: Female

DRUGS (4)
  1. SACUBITRIL\VALSARTAN [Suspect]
     Active Substance: SACUBITRIL\VALSARTAN
     Indication: Suicide attempt
     Dosage: 200 MG (28 TABLETS)
     Route: 048
     Dates: start: 20230914, end: 20230914
  2. IBUPROFEN [Concomitant]
     Active Substance: IBUPROFEN
     Indication: Suicide attempt
     Dosage: 200 MG (10 TABLETS)
     Route: 048
     Dates: start: 20230914, end: 20230914
  3. FENPIVERINIUM BROMIDE\METAMIZOLE SODIUM\PITOFENONE HYDROCHLORIDE [Concomitant]
     Active Substance: FENPIVERINIUM BROMIDE\METAMIZOLE SODIUM\PITOFENONE HYDROCHLORIDE
     Indication: Suicide attempt
     Dosage: 10 DOSAGE FORM
     Route: 048
     Dates: start: 20230914, end: 20230914
  4. SPIRONOLACTONE [Concomitant]
     Active Substance: SPIRONOLACTONE
     Indication: Suicide attempt
     Dosage: 25 MG (20 TABLETS)
     Route: 048
     Dates: start: 20230914, end: 20230914

REACTIONS (6)
  - Toxicity to various agents [Unknown]
  - Palpitations [Unknown]
  - Vomiting [Unknown]
  - Nausea [Unknown]
  - Dizziness [Unknown]
  - Asthenia [Unknown]

NARRATIVE: CASE EVENT DATE: 20230914
